FAERS Safety Report 17818608 (Version 2)
Quarter: 2020Q2

REPORT INFORMATION
  Report Type: Report from Study
  Country: BR (occurrence: BR)
  Receive Date: 20200522
  Receipt Date: 20200626
  Transmission Date: 20200714
  Serious: Yes (Disabling, Other)
  Sender: FDA-Public Use
  Company Number: PHHY2019BR013571

PATIENT
  Age: 53 Year
  Sex: Female
  Weight: 69 kg

DRUGS (1)
  1. COSENTYX [Suspect]
     Active Substance: SECUKINUMAB
     Indication: PSORIATIC ARTHROPATHY
     Dosage: 300 MG  (EVERY 28 DAYS)
     Route: 058
     Dates: start: 20180104

REACTIONS (11)
  - Joint swelling [Not Recovered/Not Resolved]
  - Hypoaesthesia [Not Recovered/Not Resolved]
  - Haemorrhage [Recovering/Resolving]
  - Gait disturbance [Not Recovered/Not Resolved]
  - Arthralgia [Not Recovered/Not Resolved]
  - Coronavirus infection [Recovering/Resolving]
  - Pain in extremity [Unknown]
  - Foot deformity [Not Recovered/Not Resolved]
  - Movement disorder [Unknown]
  - Cyst [Recovering/Resolving]
  - Peripheral swelling [Not Recovered/Not Resolved]

NARRATIVE: CASE EVENT DATE: 201807
